FAERS Safety Report 7797742-7 (Version None)
Quarter: 2011Q4

REPORT INFORMATION
  Report Type: 
  Country: None (occurrence: None)
  Receive Date: 20111005
  Receipt Date: 20110930
  Transmission Date: 20120403
  Serious: Yes (Death, Disabling, Other)
  Sender: FDA-Public Use
  Company Number: PHHY2011JP77342

PATIENT
  Age: 69 Year
  Sex: Female

DRUGS (7)
  1. TOPOTECAN [Concomitant]
     Dates: start: 20080201, end: 20091127
  2. CYCLOPHOSPHAMIDE [Concomitant]
     Dates: start: 20080201, end: 20091127
  3. PACLITAXEL [Concomitant]
     Dates: start: 20080201, end: 20091127
  4. ZOMETA [Suspect]
     Indication: METASTASES TO BONE
     Dosage: 4 MG, QMO
     Route: 041
     Dates: start: 20080301, end: 20081101
  5. DOCETAXEL [Concomitant]
     Dates: start: 20080201, end: 20091127
  6. EPIRUBICIN HYDROCHLORIDE [Concomitant]
     Dates: start: 20080201, end: 20091127
  7. IRINOTECAN HCL [Concomitant]
     Dates: start: 20080201, end: 20091127

REACTIONS (26)
  - PAIN IN JAW [None]
  - MUCOSAL ULCERATION [None]
  - TOOTH ABSCESS [None]
  - DENTAL FISTULA [None]
  - EXPOSED BONE IN JAW [None]
  - WHITE BLOOD CELL COUNT INCREASED [None]
  - SOFT TISSUE INFECTION [None]
  - ORAL INFECTION [None]
  - ORAL TORUS [None]
  - HYPOPHAGIA [None]
  - OSTEOMYELITIS [None]
  - OSTEONECROSIS OF JAW [None]
  - ORAL DISORDER [None]
  - MOUTH HAEMORRHAGE [None]
  - STOMATITIS [None]
  - C-REACTIVE PROTEIN INCREASED [None]
  - ORAL MUCOSAL ERYTHEMA [None]
  - GINGIVAL ABSCESS [None]
  - PAIN [None]
  - APHAGIA [None]
  - BONE LESION [None]
  - NEOPLASM MALIGNANT [None]
  - WOUND COMPLICATION [None]
  - NEOPLASM PROGRESSION [None]
  - PRIMARY SEQUESTRUM [None]
  - SWELLING [None]
